FAERS Safety Report 19920794 (Version 1)
Quarter: 2021Q4

REPORT INFORMATION
  Report Type: Spontaneous
  Country: US (occurrence: US)
  Receive Date: 20211005
  Receipt Date: 20211005
  Transmission Date: 20220304
  Serious: No
  Sender: FDA-Public Use
  Company Number: US-ADAMAS PHARMA, LLC-2020ADA02630

PATIENT

DRUGS (1)
  1. GOCOVRI [Suspect]
     Active Substance: AMANTADINE
     Dosage: UNK

REACTIONS (1)
  - Hallucination [Unknown]
